FAERS Safety Report 9907261 (Version 2)
Quarter: 2014Q1

REPORT INFORMATION
  Report Type: Spontaneous
  Country: US (occurrence: US)
  Receive Date: 20140218
  Receipt Date: 20140218
  Transmission Date: 20141002
  Serious: No
  Sender: FDA-Public Use
  Company Number: US-ASTRAZENECA-2013SE71741

PATIENT
  Age: 52 Year
  Sex: Female
  Weight: 75.8 kg

DRUGS (6)
  1. ATENOLOL [Suspect]
     Indication: HYPERTENSION
     Route: 048
  2. SYMBICORT [Suspect]
     Indication: ASTHMA
     Dosage: 160/4.5 MCG, TWO PUFFS BID
     Route: 055
     Dates: start: 201207, end: 20130921
  3. SYMBICORT [Suspect]
     Indication: HYPERSENSITIVITY
     Dosage: 160/4.5 MCG, TWO PUFFS BID
     Route: 055
     Dates: start: 201207, end: 20130921
  4. SYMBICORT [Suspect]
     Indication: ASTHMA
     Route: 055
  5. SYMBICORT [Suspect]
     Indication: HYPERSENSITIVITY
     Route: 055
  6. FLONASAL [Concomitant]
     Indication: HYPERSENSITIVITY
     Dosage: BID
     Route: 045

REACTIONS (5)
  - Sinusitis [Unknown]
  - Rhinitis allergic [Recovered/Resolved]
  - Asthma [Recovered/Resolved]
  - Intentional drug misuse [Unknown]
  - Drug dose omission [Unknown]
